FAERS Safety Report 14566022 (Version 1)
Quarter: 2018Q1

REPORT INFORMATION
  Report Type: Spontaneous
  Country: US (occurrence: US)
  Receive Date: 20180222
  Receipt Date: 20180222
  Transmission Date: 20180509
  Serious: Yes (Hospitalization)
  Sender: FDA-Public Use
  Company Number: None

PATIENT
  Sex: Male
  Weight: 74.9 kg

DRUGS (3)
  1. ELOXATIN [Suspect]
     Active Substance: OXALIPLATIN
     Dates: end: 20180131
  2. 5-FLUOROURACIL (5-FU) [Suspect]
     Active Substance: FLUOROURACIL
     Dates: end: 20180202
  3. LEUCOVORIN CALCIUM. [Suspect]
     Active Substance: LEUCOVORIN CALCIUM
     Dates: end: 20180131

REACTIONS (10)
  - Sepsis [None]
  - Culture positive [None]
  - Asthenia [None]
  - Feeling hot [None]
  - Swelling [None]
  - Bacteraemia [None]
  - Escherichia test positive [None]
  - Abscess [None]
  - Klebsiella test positive [None]
  - Rectal abscess [None]

NARRATIVE: CASE EVENT DATE: 20180212
